FAERS Safety Report 8060812-2 (Version None)
Quarter: 2012Q1

REPORT INFORMATION
  Report Type: 
  Country: None (occurrence: None)
  Receive Date: 20120120
  Receipt Date: 20110202
  Transmission Date: 20120608
  Serious: No
  Sender: FDA-Public Use
  Company Number: US-ALLERGAN-1101504US

PATIENT
  Age: 54 Year
  Sex: Female

DRUGS (3)
  1. SYSTEMEX [Concomitant]
     Indication: DRY EYE
     Dosage: UNK
     Route: 047
  2. RESTASIS [Suspect]
     Indication: DRY EYE
     Dosage: 1 GTT, BID
     Route: 047
  3. TOPAMAX [Concomitant]
     Indication: EYE INFLAMMATION
     Dosage: 4 GTT, QD
     Route: 047

REACTIONS (2)
  - VISION BLURRED [None]
  - FOREIGN BODY SENSATION IN EYES [None]
